FAERS Safety Report 7544429-1 (Version None)
Quarter: 2011Q2

REPORT INFORMATION
  Report Type: 
  Country: None (occurrence: None)
  Receive Date: 20110613
  Receipt Date: 20091002
  Transmission Date: 20111010
  Serious: Yes (Other)
  Sender: FDA-Public Use
  Company Number: PHHY2009JP42802

PATIENT
  Sex: Male
  Weight: 60 kg

DRUGS (3)
  1. EXJADE [Suspect]
     Indication: MYELODYSPLASTIC SYNDROME
     Dosage: 625 MG,DAILY
     Route: 048
     Dates: start: 20090121, end: 20090727
  2. EXJADE [Suspect]
     Indication: IRON OVERLOAD
  3. ALLOPURINOL [Concomitant]
     Dosage: 200 MG
     Route: 048
     Dates: start: 20090121, end: 20090727

REACTIONS (1)
  - BRAIN NATRIURETIC PEPTIDE INCREASED [None]
